FAERS Safety Report 12172688 (Version 5)
Quarter: 2021Q3

REPORT INFORMATION
  Report Type: Spontaneous
  Country: FR (occurrence: FR)
  Receive Date: 20160311
  Receipt Date: 20210916
  Transmission Date: 20211014
  Serious: Yes (Hospitalization, Congenital Anomaly, Other)
  Sender: FDA-Public Use
  Company Number: FR-ABBVIE-16P-056-1579598-00

PATIENT
  Sex: Male

DRUGS (3)
  1. SPECIAFOLDINE [Concomitant]
     Active Substance: FOLIC ACID
     Indication: PRODUCT USED FOR UNKNOWN INDICATION
     Route: 065
     Dates: start: 19990304, end: 19991119
  2. DEPAKINE CHRONO [Suspect]
     Active Substance: VALPROATE SODIUM
     Indication: MATERNAL EXPOSURE TIMING UNSPECIFIED
     Route: 064
  3. RIVOTRIL [Concomitant]
     Active Substance: CLONAZEPAM
     Indication: PRODUCT USED FOR UNKNOWN INDICATION
     Route: 065
     Dates: start: 199910, end: 199910

REACTIONS (32)
  - Bronchitis [Unknown]
  - Ear malformation [Unknown]
  - Hydrocele [Unknown]
  - Fine motor delay [Unknown]
  - Ear disorder [Unknown]
  - Clinodactyly [Unknown]
  - Developmental delay [Unknown]
  - Ear infection [Unknown]
  - Nasal disorder [Unknown]
  - Eating disorder [Unknown]
  - Ill-defined disorder [Recovered/Resolved]
  - Poor sucking reflex [Unknown]
  - Cognitive disorder [Unknown]
  - Gastrointestinal disorder [Unknown]
  - Foetal exposure during pregnancy [Unknown]
  - Myopia [Not Recovered/Not Resolved]
  - Intellectual disability [Unknown]
  - Polydactyly [Unknown]
  - Malnutrition [Unknown]
  - Psychomotor retardation [Unknown]
  - Pharyngeal disorder [Unknown]
  - Congenital hand malformation [Recovered/Resolved]
  - Hypospadias [Recovered/Resolved]
  - Congenital anomaly [Unknown]
  - Hypertonia [Unknown]
  - Tympanic membrane perforation [Not Recovered/Not Resolved]
  - Dysmorphism [Not Recovered/Not Resolved]
  - Cryptorchism [Recovered/Resolved]
  - Speech disorder developmental [Unknown]
  - Feeding disorder [Recovered/Resolved]
  - Deafness [Unknown]
  - Cleft palate [Recovered/Resolved]

NARRATIVE: CASE EVENT DATE: 19991119
